FAERS Safety Report 10585565 (Version 1)
Quarter: 2014Q4

REPORT INFORMATION
  Report Type: Spontaneous
  Country: IT (occurrence: None)
  Receive Date: 20141113
  Receipt Date: 20141113
  Transmission Date: 20150529
  Serious: Yes (Hospitalization)
  Sender: FDA-Public Use
  Company Number: COR_00143_2014

PATIENT
  Age: 50 Year
  Sex: Male

DRUGS (2)
  1. PLACLITAXEL [Concomitant]
     Active Substance: PACLITAXEL
  2. CARBOPLATIN (CARBOPLATIN) [Suspect]
     Active Substance: CARBOPLATIN
     Indication: LUNG ADENOCARCINOMA
     Dosage: AT LEAST 6 CYCLES, FREE INTERVAL OF TWO WEEKS BETWEEN CYCLES, IN FUSION, IN DEXTROSE 5%

REACTIONS (9)
  - Atrial fibrillation [None]
  - Rash [None]
  - Chest pain [None]
  - Electrocardiogram ST segment depression [None]
  - Electrocardiogram ST segment elevation [None]
  - Eosinophilia [None]
  - Neutrophilia [None]
  - Hypersensitivity [None]
  - Blood immunoglobulin E increased [None]
